FAERS Safety Report 18434023 (Version 26)
Quarter: 2022Q3

REPORT INFORMATION
  Report Type: Other
  Country: GB (occurrence: GB)
  Receive Date: 20201028
  Receipt Date: 20220705
  Transmission Date: 20221027
  Serious: Yes (Other)
  Sender: FDA-Public Use
  Company Number: None

PATIENT
  Age: 54 Year
  Sex: Male

DRUGS (448)
  1. CEFTRIAXONE [Suspect]
     Active Substance: CEFTRIAXONE
     Indication: Pneumonia
     Dosage: 2 GRAM (ROCEPHINE INJECTION, POWDER, FOR SOLUTION)
     Route: 042
     Dates: start: 2006
  2. CEFTRIAXONE [Suspect]
     Active Substance: CEFTRIAXONE
     Indication: Ill-defined disorder
     Dosage: UNK (ROCEPHINE INJECTION, POWDER, FOR SOLUTION)
     Route: 042
     Dates: start: 2006
  3. CEFTRIAXONE [Suspect]
     Active Substance: CEFTRIAXONE
     Dosage: 2 GRAM
     Route: 042
  4. CEFTRIAXONE [Suspect]
     Active Substance: CEFTRIAXONE
     Dosage: UNK (POWDER FOR INJECTION
     Route: 065
  5. CEFTRIAXONE [Suspect]
     Active Substance: CEFTRIAXONE
     Dosage: 2 MILLIGRAM, QD
     Route: 042
     Dates: start: 2006
  6. CEFTRIAXONE [Suspect]
     Active Substance: CEFTRIAXONE
     Dosage: 201 (POWDER FOR SOLUTION FOR INJECTION)
     Route: 042
  7. CEFTRIAXONE [Suspect]
     Active Substance: CEFTRIAXONE
     Dosage: 2 GRAM
     Route: 042
     Dates: start: 2006
  8. CEFTRIAXONE [Suspect]
     Active Substance: CEFTRIAXONE
     Dosage: 2 GRAM, Q (189 POWDER AND SOLVENT FOR SOLUTION FOR INFUSION)
     Route: 042
     Dates: start: 2006
  9. CEFTRIAXONE [Suspect]
     Active Substance: CEFTRIAXONE
     Dosage: 2 GRAM (POWDER FOR INJECTION)
     Route: 042
  10. SIMVASTATIN [Suspect]
     Active Substance: SIMVASTATIN
     Indication: Pneumonia
     Dosage: 40 MILLIGRAM, QD
     Route: 042
     Dates: start: 2006
  11. SIMVASTATIN [Suspect]
     Active Substance: SIMVASTATIN
     Indication: Ill-defined disorder
     Dosage: 40 MILLIGRAM, QD
     Route: 042
     Dates: start: 2006
  12. SIMVASTATIN [Suspect]
     Active Substance: SIMVASTATIN
     Dosage: 40 MILLIGRAM, QD
     Route: 065
     Dates: start: 2006
  13. SIMVASTATIN [Suspect]
     Active Substance: SIMVASTATIN
     Dosage: 40 MILLIGRAM, QD
     Route: 048
     Dates: start: 2006
  14. SIMVASTATIN [Suspect]
     Active Substance: SIMVASTATIN
     Dosage: 40 MILLIGRAM, QD
     Route: 065
  15. SIMVASTATIN [Suspect]
     Active Substance: SIMVASTATIN
     Dosage: 40 MILLIGRAM, QD
     Route: 042
  16. SIMVASTATIN [Suspect]
     Active Substance: SIMVASTATIN
     Dosage: 40 MILLIGRAM, BID
     Route: 042
     Dates: start: 2006
  17. SIMVASTATIN [Suspect]
     Active Substance: SIMVASTATIN
     Dosage: UNK
     Route: 065
  18. LANSOPRAZOLE [Suspect]
     Active Substance: LANSOPRAZOLE
     Indication: Pneumonia
     Dosage: 3 GRAM
     Route: 065
     Dates: start: 2006
  19. LANSOPRAZOLE [Suspect]
     Active Substance: LANSOPRAZOLE
     Indication: Ill-defined disorder
     Dosage: 30 MILLIGRAM, QD
     Route: 065
     Dates: start: 2006
  20. LANSOPRAZOLE [Suspect]
     Active Substance: LANSOPRAZOLE
     Dosage: 3 GRAM
     Route: 065
  21. LANSOPRAZOLE [Suspect]
     Active Substance: LANSOPRAZOLE
     Dosage: UNK UNK, QD (1-2MG ONCE ONLY)
     Route: 065
  22. LANSOPRAZOLE [Suspect]
     Active Substance: LANSOPRAZOLE
     Dosage: 10 MILLILITER (CAPSULE)
     Route: 065
     Dates: start: 2006
  23. LANSOPRAZOLE [Suspect]
     Active Substance: LANSOPRAZOLE
     Dosage: 3 MILLIGRAM
     Route: 065
  24. LANSOPRAZOLE [Suspect]
     Active Substance: LANSOPRAZOLE
     Dosage: 3 GRAM, QD
     Route: 065
     Dates: start: 2006
  25. LANSOPRAZOLE [Suspect]
     Active Substance: LANSOPRAZOLE
     Dosage: 3 GRAM, QD
     Route: 065
     Dates: start: 2006
  26. LANSOPRAZOLE [Suspect]
     Active Substance: LANSOPRAZOLE
     Dosage: 30 MILLIGRAM, QD
     Route: 065
  27. LANSOPRAZOLE [Suspect]
     Active Substance: LANSOPRAZOLE
     Dosage: 30 MILLIGRAM
     Route: 065
  28. LANSOPRAZOLE [Suspect]
     Active Substance: LANSOPRAZOLE
     Dosage: 3 GRAM (EVERY HOUR)
     Route: 042
  29. LANSOPRAZOLE [Suspect]
     Active Substance: LANSOPRAZOLE
     Dosage: 3 GRAM (3 GRAM PER 1 HOUR (1 G,TID (DAILY DOSE: 3 GRAM(S), 1 G, TID), (0.33 DAY)
     Route: 042
  30. LANSOPRAZOLE [Suspect]
     Active Substance: LANSOPRAZOLE
     Dosage: 3 MILLIGRAM (ZOTON)
     Route: 065
  31. LANSOPRAZOLE [Suspect]
     Active Substance: LANSOPRAZOLE
     Dosage: 1 DOSAGE FORM, QD
     Dates: start: 2006
  32. LANSOPRAZOLE [Suspect]
     Active Substance: LANSOPRAZOLE
     Dosage: 2 GRAM, QD
     Route: 065
     Dates: start: 2006
  33. HYDROCORTISONE [Suspect]
     Active Substance: HYDROCORTISONE
     Indication: Ill-defined disorder
     Dosage: 100 MILLIGRAM, QD
     Route: 048
  34. HYDROCORTISONE [Suspect]
     Active Substance: HYDROCORTISONE
     Indication: Pneumonia
     Dosage: 400 MILLIGRAM, QD
     Route: 042
  35. HYDROCORTISONE [Suspect]
     Active Substance: HYDROCORTISONE
     Dosage: 100 MILLIGRAM (TOTAL)
     Route: 042
  36. HYDROCORTISONE [Suspect]
     Active Substance: HYDROCORTISONE
     Dosage: 100 MILLIGRAM (TOTAL)
     Route: 065
     Dates: start: 2006
  37. HYDROCORTISONE [Suspect]
     Active Substance: HYDROCORTISONE
     Dosage: 100 MILLIGRAM (TOTAL)
     Route: 042
     Dates: start: 2006
  38. HYDROCORTISONE [Suspect]
     Active Substance: HYDROCORTISONE
     Dosage: 100 MILLIGRAM, QD (POWDER FOR SOLUTION FOR INJECTION)
     Route: 042
     Dates: start: 2006
  39. HYDROCORTISONE [Suspect]
     Active Substance: HYDROCORTISONE
     Dosage: 100 MILLIGRAM, QD
     Route: 042
  40. HYDROCORTISONE [Suspect]
     Active Substance: HYDROCORTISONE
     Dosage: 100 MILLIGRAM, 1 DOSAGE TOTAL; IN TOTAL
     Route: 065
  41. HYDROCORTISONE [Suspect]
     Active Substance: HYDROCORTISONE
     Dosage: UNK
     Route: 065
     Dates: start: 2006
  42. HYDROCORTISONE [Suspect]
     Active Substance: HYDROCORTISONE
     Dosage: 100 MILLIGRAM TOTAL
     Route: 065
     Dates: start: 2006
  43. HYDROCORTISONE [Suspect]
     Active Substance: HYDROCORTISONE
     Dosage: UNK
     Route: 065
  44. ALBUTEROL [Suspect]
     Active Substance: ALBUTEROL
     Indication: Ill-defined disorder
     Dosage: UNK AS NECESSARY
     Route: 065
     Dates: start: 2006
  45. ALBUTEROL [Suspect]
     Active Substance: ALBUTEROL
     Indication: Pneumonia
     Dosage: 1 DOSAGE FORM, PRN
     Route: 065
     Dates: start: 2006
  46. ALBUTEROL [Suspect]
     Active Substance: ALBUTEROL
     Indication: Product used for unknown indication
     Dosage: UNK
     Route: 065
     Dates: start: 2006
  47. ALBUTEROL [Suspect]
     Active Substance: ALBUTEROL
     Dosage: UNK
     Route: 065
     Dates: start: 2006
  48. ALBUTEROL [Suspect]
     Active Substance: ALBUTEROL
     Dosage: 1 UNK
     Route: 065
  49. ALBUTEROL [Suspect]
     Active Substance: ALBUTEROL
     Dosage: UNK, PRN
     Route: 065
     Dates: start: 2006
  50. ALBUTEROL [Suspect]
     Active Substance: ALBUTEROL
     Dosage: UNK, AS REQUIRED;
     Route: 065
  51. ALBUTEROL [Suspect]
     Active Substance: ALBUTEROL
     Dosage: 1 DOSAGE FORM, PRN ((AS NECESSARY )
     Route: 065
     Dates: start: 2006
  52. LORAZEPAM [Suspect]
     Active Substance: LORAZEPAM
     Indication: Ill-defined disorder
     Dosage: 1-2MG ONCE ONLY
     Route: 065
     Dates: start: 2006
  53. LORAZEPAM [Suspect]
     Active Substance: LORAZEPAM
     Indication: Pneumonia
     Dosage: 1.2 GRAM
     Route: 065
  54. LORAZEPAM [Suspect]
     Active Substance: LORAZEPAM
     Dosage: UNK
     Route: 065
  55. LORAZEPAM [Suspect]
     Active Substance: LORAZEPAM
     Dosage: 1.2 MILLIGRAM
     Route: 065
     Dates: start: 2006
  56. LORAZEPAM [Suspect]
     Active Substance: LORAZEPAM
     Dosage: 2 MILLIGRAM, QD
     Route: 065
     Dates: start: 2006
  57. OMEPRAZOLE [Suspect]
     Active Substance: OMEPRAZOLE
     Indication: Ill-defined disorder
     Dosage: 40 MILLIGRAM
     Route: 042
     Dates: start: 2006
  58. OMEPRAZOLE [Suspect]
     Active Substance: OMEPRAZOLE
     Indication: Pneumonia
     Dosage: UNK
     Route: 065
  59. OMEPRAZOLE [Suspect]
     Active Substance: OMEPRAZOLE
     Dosage: UNK
     Route: 065
  60. OMEPRAZOLE [Suspect]
     Active Substance: OMEPRAZOLE
     Dosage: UNK
     Route: 065
  61. OMEPRAZOLE [Suspect]
     Active Substance: OMEPRAZOLE
     Dosage: 40 MILLIGRAM, QD
     Route: 042
  62. POTASSIUM CHLORIDE [Suspect]
     Active Substance: POTASSIUM CHLORIDE
     Indication: Pneumonia
     Dosage: 40 MMOL/100ML
     Route: 005
     Dates: start: 2006
  63. POTASSIUM CHLORIDE [Suspect]
     Active Substance: POTASSIUM CHLORIDE
     Indication: Ill-defined disorder
     Dosage: 2 DOSAGE FORM, TID
     Route: 065
     Dates: start: 2006
  64. POTASSIUM CHLORIDE [Suspect]
     Active Substance: POTASSIUM CHLORIDE
     Dosage: 2 DOSAGE FORM, TID
     Route: 061
     Dates: start: 2006
  65. POTASSIUM CHLORIDE [Suspect]
     Active Substance: POTASSIUM CHLORIDE
     Dosage: UNK, TID
     Route: 065
  66. POTASSIUM CHLORIDE [Suspect]
     Active Substance: POTASSIUM CHLORIDE
     Dosage: UNK, TID (40MMOLS/100ML INFUSION)
     Route: 065
     Dates: start: 2006
  67. POTASSIUM CHLORIDE [Suspect]
     Active Substance: POTASSIUM CHLORIDE
     Dosage: UNK
     Route: 065
  68. POTASSIUM CHLORIDE [Suspect]
     Active Substance: POTASSIUM CHLORIDE
     Dosage: 1 DOSAGE FORM, QD
     Route: 042
     Dates: start: 2006
  69. POTASSIUM CHLORIDE [Suspect]
     Active Substance: POTASSIUM CHLORIDE
     Dosage: 6 DOSAGE FORM, QD
     Route: 042
  70. POTASSIUM CHLORIDE [Suspect]
     Active Substance: POTASSIUM CHLORIDE
     Dosage: 2 DOSAGE FORM, QD
     Route: 042
  71. POTASSIUM CHLORIDE [Suspect]
     Active Substance: POTASSIUM CHLORIDE
     Dosage: 6 DOSAGE FORM, QD
     Route: 065
  72. POTASSIUM CHLORIDE [Suspect]
     Active Substance: POTASSIUM CHLORIDE
     Dosage: UNK
     Route: 065
     Dates: start: 2006
  73. POTASSIUM CHLORIDE [Suspect]
     Active Substance: POTASSIUM CHLORIDE
     Dosage: 6 DOSAGE FORM, QD
     Route: 065
  74. POTASSIUM CHLORIDE [Suspect]
     Active Substance: POTASSIUM CHLORIDE
     Dosage: 293 DOSAGE FORM, TID
     Route: 065
  75. POTASSIUM CHLORIDE [Suspect]
     Active Substance: POTASSIUM CHLORIDE
     Dosage: UNK, TID (0.33 DAY);
     Route: 065
  76. POTASSIUM CHLORIDE [Suspect]
     Active Substance: POTASSIUM CHLORIDE
     Dosage: UNK UNK, TID, 40 MMOLS/100ML INFUSION
     Route: 065
  77. POTASSIUM CHLORIDE [Suspect]
     Active Substance: POTASSIUM CHLORIDE
     Dosage: 2 DOSAGE FORM, TID
     Route: 061
  78. POTASSIUM CHLORIDE [Suspect]
     Active Substance: POTASSIUM CHLORIDE
     Dosage: 120 MILLIMOLE, QD
     Route: 065
     Dates: start: 2006
  79. AMOXICILLIN [Suspect]
     Active Substance: AMOXICILLIN
     Indication: Pneumonia
     Dosage: 1 GRAM, TID (3 GRAM DAILY)
     Route: 042
     Dates: start: 20060913
  80. AMOXICILLIN [Suspect]
     Active Substance: AMOXICILLIN
     Indication: Product used for unknown indication
     Dosage: 250 MILLIGRAM, TID (CAPSULE)
     Route: 048
     Dates: start: 20060913
  81. AMOXICILLIN [Suspect]
     Active Substance: AMOXICILLIN
     Indication: Ill-defined disorder
     Dosage: 250 MILLIGRAM, QD
     Route: 048
     Dates: start: 20060913
  82. AMOXICILLIN [Suspect]
     Active Substance: AMOXICILLIN
     Dosage: 250 MILLIGRAM
     Route: 048
     Dates: start: 20060913
  83. AMOXICILLIN [Suspect]
     Active Substance: AMOXICILLIN
     Dosage: 1 GRAM, TID (CAPSULE)
     Route: 048
  84. AMOXICILLIN [Suspect]
     Active Substance: AMOXICILLIN
     Dosage: 1 GRAM, TID (CAPSULE)
     Route: 048
  85. AMOXICILLIN [Suspect]
     Active Substance: AMOXICILLIN
     Dosage: UNK
     Route: 065
  86. AMOXICILLIN [Suspect]
     Active Substance: AMOXICILLIN
     Dosage: 1 GRAM, TID (3 GRAM, QD)
     Route: 042
  87. AMOXICILLIN [Suspect]
     Active Substance: AMOXICILLIN
     Dosage: UNK
     Route: 065
  88. AMOXICILLIN [Suspect]
     Active Substance: AMOXICILLIN
     Dosage: 250 MILLIGRAM
     Route: 048
     Dates: start: 20060913
  89. AMOXICILLIN [Suspect]
     Active Substance: AMOXICILLIN
     Dosage: 1 GRAM QD (CAPSULE)
     Route: 048
  90. AMOXICILLIN [Suspect]
     Active Substance: AMOXICILLIN
     Dosage: UNK (CAPSULE)
     Route: 065
  91. AMOXICILLIN [Suspect]
     Active Substance: AMOXICILLIN
     Dosage: 3 GRAM, QD ()1 GRAM, TID
     Route: 042
     Dates: start: 20060913
  92. AMOXICILLIN [Suspect]
     Active Substance: AMOXICILLIN
     Dosage: 9 GRAM, QD (3 GRAM, TID)
     Route: 042
  93. AMOXICILLIN [Suspect]
     Active Substance: AMOXICILLIN
     Dosage: 3 GRAM, QD (POWDER FOR INJECTION)
     Route: 042
     Dates: start: 20060913
  94. AMOXICILLIN [Suspect]
     Active Substance: AMOXICILLIN
     Dosage: 250 MILLIGRAM, QD
     Route: 042
  95. AMOXICILLIN [Suspect]
     Active Substance: AMOXICILLIN
     Dosage: 750 MILLIGRAM, TID
     Route: 048
  96. AMOXICILLIN [Suspect]
     Active Substance: AMOXICILLIN
     Dosage: 250 MILLIGRAM, TID (CAPSULE)
     Route: 048
     Dates: start: 20060913
  97. AMOXICILLIN [Suspect]
     Active Substance: AMOXICILLIN
     Dosage: 1 GRAM QD
     Route: 042
  98. AMOXICILLIN [Suspect]
     Active Substance: AMOXICILLIN
     Dosage: 1 GRAM, TIME INTERVAL
     Route: 042
     Dates: start: 20060913
  99. AMOXICILLIN [Suspect]
     Active Substance: AMOXICILLIN
     Dosage: 1 GRAM, TID (3 GRAM, QD)
     Route: 042
  100. AMOXICILLIN [Suspect]
     Active Substance: AMOXICILLIN
     Dosage: 1 GRAM, EVERY 8 HOURS (3 GRAM, QD)
     Route: 042
  101. AMOXICILLIN [Suspect]
     Active Substance: AMOXICILLIN
     Dosage: 250 MILLIGRAM, TID (CAPSULE)
     Route: 048
     Dates: start: 20060913
  102. AMOXICILLIN [Suspect]
     Active Substance: AMOXICILLIN
     Dosage: 250 MILLIGRAM, QD
     Route: 048
     Dates: start: 20060913
  103. AMOXICILLIN [Suspect]
     Active Substance: AMOXICILLIN
     Dosage: 250 MILLIGRAM, TID (750 MG, QD)
     Route: 042
     Dates: start: 20060913
  104. ACETAMINOPHEN [Suspect]
     Active Substance: ACETAMINOPHEN
     Indication: Pneumonia
     Dosage: UNK
     Route: 065
     Dates: start: 2006
  105. ACETAMINOPHEN [Suspect]
     Active Substance: ACETAMINOPHEN
     Indication: Ill-defined disorder
     Dosage: 50 MILLILITER (50 ML (50 UNITS/50ML) )
     Route: 042
     Dates: start: 2006
  106. ACETAMINOPHEN [Suspect]
     Active Substance: ACETAMINOPHEN
     Dosage: UNK,(50 UNITS/50ML)
     Route: 065
     Dates: start: 2006
  107. ACETAMINOPHEN [Suspect]
     Active Substance: ACETAMINOPHEN
     Dosage: 40 MG, QD (SOLUBLE TABLET)
     Route: 065
     Dates: start: 2006
  108. ACETAMINOPHEN [Suspect]
     Active Substance: ACETAMINOPHEN
     Dosage: UNK
     Route: 065
  109. ACETAMINOPHEN [Suspect]
     Active Substance: ACETAMINOPHEN
     Dosage: 50 MILLILITER (50 ML (50 UNITS/50ML) (SOLUBLE TABLET) )
     Route: 042
     Dates: start: 2006
  110. ACETAMINOPHEN [Suspect]
     Active Substance: ACETAMINOPHEN
     Dosage: 50 ML (50 UNITS/50ML)  (SOLUBLE TABLET)
     Route: 042
     Dates: start: 2006
  111. CALCIUM GLUCONATE [Suspect]
     Active Substance: CALCIUM GLUCONATE
     Indication: Ill-defined disorder
     Dosage: 10 MILLILITER, QD
     Route: 042
     Dates: start: 2006
  112. CALCIUM GLUCONATE [Suspect]
     Active Substance: CALCIUM GLUCONATE
     Indication: Pneumonia
     Dosage: 10 MILLILITER
     Route: 042
     Dates: start: 2006
  113. CALCIUM GLUCONATE [Suspect]
     Active Substance: CALCIUM GLUCONATE
     Dosage: UNK
     Route: 065
     Dates: start: 2006
  114. CALCIUM GLUCONATE [Suspect]
     Active Substance: CALCIUM GLUCONATE
     Dosage: UNK
     Route: 065
     Dates: start: 2006
  115. CALCIUM GLUCONATE [Suspect]
     Active Substance: CALCIUM GLUCONATE
     Dosage: UNK
     Route: 065
  116. CALCIUM GLUCONATE [Suspect]
     Active Substance: CALCIUM GLUCONATE
     Dosage: 10 MILLILITER
     Route: 042
     Dates: start: 2006
  117. CALCIUM GLUCONATE [Suspect]
     Active Substance: CALCIUM GLUCONATE
     Dosage: 10 DOSAGE FORM, QD
     Route: 042
     Dates: start: 2006
  118. CALCIUM GLUCONATE [Suspect]
     Active Substance: CALCIUM GLUCONATE
     Dosage: 10 MILLILITER, QD (SOLUTION FOR INJECTION)
     Route: 042
     Dates: start: 2006
  119. CALCIUM GLUCONATE [Suspect]
     Active Substance: CALCIUM GLUCONATE
     Dosage: UNK (SOLUTION FOR INJECTION)
     Route: 065
  120. DALTEPARIN SODIUM [Concomitant]
     Active Substance: DALTEPARIN SODIUM
     Indication: Pneumonia
     Dosage: 2500 INTERNATIONAL UNIT, QD
     Route: 065
     Dates: start: 2006
  121. DALTEPARIN SODIUM [Concomitant]
     Active Substance: DALTEPARIN SODIUM
     Indication: Ill-defined disorder
     Dosage: 2500 INTERNATIONAL UNIT, QD
     Route: 065
  122. DALTEPARIN SODIUM [Concomitant]
     Active Substance: DALTEPARIN SODIUM
     Dosage: 200 INTERNATIONAL UNIT, QD
     Route: 065
     Dates: start: 2006
  123. DALTEPARIN SODIUM [Concomitant]
     Active Substance: DALTEPARIN SODIUM
     Dosage: 2000 INTERNATIONAL UNIT, QD
     Route: 065
  124. DALTEPARIN SODIUM [Concomitant]
     Active Substance: DALTEPARIN SODIUM
     Dosage: 2500 INTERNATIONAL UNIT, QD
     Route: 065
  125. DALTEPARIN SODIUM [Concomitant]
     Active Substance: DALTEPARIN SODIUM
     Dosage: 250 INTERNATIONAL UNIT, QD
     Route: 065
  126. DALTEPARIN SODIUM [Concomitant]
     Active Substance: DALTEPARIN SODIUM
     Dosage: UNK
     Route: 065
  127. DALTEPARIN SODIUM [Concomitant]
     Active Substance: DALTEPARIN SODIUM
     Dosage: 2500 INTERNATIONAL UNIT, QD
     Route: 058
     Dates: start: 2006
  128. DALTEPARIN SODIUM [Concomitant]
     Active Substance: DALTEPARIN SODIUM
     Dosage: 20 MILLIGRAM, BID
     Route: 042
     Dates: start: 2006
  129. DALTEPARIN SODIUM [Concomitant]
     Active Substance: DALTEPARIN SODIUM
     Dosage: UNK
     Route: 058
     Dates: start: 2006
  130. DALTEPARIN SODIUM [Concomitant]
     Active Substance: DALTEPARIN SODIUM
     Dosage: UNK UNK, QD
     Route: 065
  131. DALTEPARIN SODIUM [Concomitant]
     Active Substance: DALTEPARIN SODIUM
     Dosage: 200 INTERNATIONAL UNIT, QD
     Route: 058
  132. SILVER SULFADIAZINE [Suspect]
     Active Substance: SILVER SULFADIAZINE
     Indication: Pneumonia
     Dosage: UNK
     Route: 061
  133. SILVER SULFADIAZINE [Suspect]
     Active Substance: SILVER SULFADIAZINE
     Indication: Ill-defined disorder
     Dosage: UNK
     Route: 061
     Dates: start: 2006
  134. SILVER SULFADIAZINE [Suspect]
     Active Substance: SILVER SULFADIAZINE
     Dosage: UNK
     Route: 061
     Dates: start: 2006
  135. SILVER SULFADIAZINE [Suspect]
     Active Substance: SILVER SULFADIAZINE
     Dosage: UNK
     Route: 061
     Dates: start: 2006
  136. SILVER SULFADIAZINE [Suspect]
     Active Substance: SILVER SULFADIAZINE
     Dosage: UNK
     Route: 061
     Dates: start: 2006
  137. SILVER SULFADIAZINE [Suspect]
     Active Substance: SILVER SULFADIAZINE
     Dosage: UNK
     Route: 065
     Dates: start: 2006
  138. SILVER SULFADIAZINE [Suspect]
     Active Substance: SILVER SULFADIAZINE
     Dosage: UNK
     Route: 065
  139. CALCIUM CHLORIDE [Suspect]
     Active Substance: CALCIUM CHLORIDE
     Indication: Pneumonia
     Dosage: UNK
     Route: 065
  140. CALCIUM CHLORIDE [Suspect]
     Active Substance: CALCIUM CHLORIDE
     Indication: Ill-defined disorder
     Dosage: 120 DOSAGE FORM (10 MILLILITER)
     Route: 065
  141. CALCIUM CHLORIDE [Suspect]
     Active Substance: CALCIUM CHLORIDE
     Dosage: 10 MILLILITER, QD
     Route: 042
     Dates: start: 2006
  142. CALCIUM CHLORIDE [Suspect]
     Active Substance: CALCIUM CHLORIDE
     Dosage: UNK
     Route: 065
     Dates: start: 2006
  143. CALCIUM CHLORIDE [Suspect]
     Active Substance: CALCIUM CHLORIDE
     Dosage: 120 UNK, DAILY DOSE: 10 MILLILITRE
     Route: 042
     Dates: start: 2006
  144. CALCIUM CHLORIDE [Suspect]
     Active Substance: CALCIUM CHLORIDE
     Dosage: UNK (SOLUTION FOR INJECTION)
     Route: 042
  145. CHLORPHENIRAMINE MALEATE [Suspect]
     Active Substance: CHLORPHENIRAMINE MALEATE
     Indication: Pneumonia
     Dosage: 10 MILLIGRAM, QID (40 MG QD)
     Route: 042
     Dates: start: 2006
  146. CHLORPHENIRAMINE MALEATE [Suspect]
     Active Substance: CHLORPHENIRAMINE MALEATE
     Indication: Ill-defined disorder
     Dosage: 10 MILLIGRAM, QID (40 MG QD)
     Route: 042
     Dates: start: 2006
  147. CHLORPHENIRAMINE MALEATE [Suspect]
     Active Substance: CHLORPHENIRAMINE MALEATE
     Indication: Toxic epidermal necrolysis
     Dosage: 10 MILLIGRAM, QID (40 MG QD)
     Route: 042
     Dates: start: 2006
  148. CHLORPHENIRAMINE MALEATE [Suspect]
     Active Substance: CHLORPHENIRAMINE MALEATE
     Dosage: 10 MILLIGRAM, QID (40 MG QD)
     Route: 042
  149. CHLORPHENIRAMINE MALEATE [Suspect]
     Active Substance: CHLORPHENIRAMINE MALEATE
     Dosage: 40 MILLIGRAM, QD
     Route: 065
     Dates: start: 2006
  150. CHLORPHENIRAMINE MALEATE [Suspect]
     Active Substance: CHLORPHENIRAMINE MALEATE
     Dosage: 10 MILLIGRAM 1 DOSE 6 HOURS
     Route: 042
     Dates: start: 2006
  151. CHLORPHENIRAMINE MALEATE [Suspect]
     Active Substance: CHLORPHENIRAMINE MALEATE
     Dosage: 10 MILLIGRAM, QD
     Route: 042
     Dates: start: 2006
  152. CHLORPHENIRAMINE MALEATE [Suspect]
     Active Substance: CHLORPHENIRAMINE MALEATE
     Dosage: 400 MILLIGRAM, QD
     Route: 042
  153. CHLORPHENIRAMINE MALEATE [Suspect]
     Active Substance: CHLORPHENIRAMINE MALEATE
     Dosage: 40 MILLIGRAM, QD
     Route: 042
     Dates: start: 2006
  154. CHLORPHENIRAMINE MALEATE [Suspect]
     Active Substance: CHLORPHENIRAMINE MALEATE
     Dosage: 10 MILLIGRAM, QD
     Route: 042
     Dates: start: 2006
  155. CHLORPHENIRAMINE MALEATE [Suspect]
     Active Substance: CHLORPHENIRAMINE MALEATE
     Dosage: 10 MILLIGRAM, TID
     Route: 042
  156. VITAMIN K [Suspect]
     Active Substance: PHYTONADIONE
     Indication: Pneumonia
     Dosage: UNK
     Route: 065
  157. VITAMIN K [Suspect]
     Active Substance: PHYTONADIONE
     Indication: Ill-defined disorder
     Dosage: UNK
     Route: 065
     Dates: start: 2006
  158. VITAMIN K [Suspect]
     Active Substance: PHYTONADIONE
     Dosage: UNK
     Route: 065
     Dates: start: 2006
  159. VITAMIN K [Suspect]
     Active Substance: PHYTONADIONE
     Dosage: UNK
     Route: 065
     Dates: start: 2006
  160. VITAMIN K [Suspect]
     Active Substance: PHYTONADIONE
     Dosage: UNK
     Route: 065
  161. VITAMIN K [Suspect]
     Active Substance: PHYTONADIONE
     Dosage: UNK UNK (50 UNITS/50ML)
     Route: 042
     Dates: start: 2006
  162. PROPOFOL [Suspect]
     Active Substance: PROPOFOL
     Indication: Pneumonia
     Dosage: UNK (GARGLE/MOUTH WASH)
     Route: 065
  163. PROPOFOL [Suspect]
     Active Substance: PROPOFOL
     Indication: Ill-defined disorder
     Dosage: UNK (GARGLE/MOUTH WASH)
     Route: 065
     Dates: start: 2006
  164. PROPOFOL [Suspect]
     Active Substance: PROPOFOL
     Dosage: UNK
     Route: 042
     Dates: start: 2006
  165. PROPOFOL [Suspect]
     Active Substance: PROPOFOL
     Dosage: UNK
     Route: 065
     Dates: start: 2006
  166. PROPOFOL [Suspect]
     Active Substance: PROPOFOL
     Dosage: UNK
     Route: 042
     Dates: start: 2006
  167. PROPOFOL [Suspect]
     Active Substance: PROPOFOL
     Dosage: UNK (PERIODONTAL INSERT)
     Route: 042
     Dates: start: 2006
  168. PROPOFOL [Suspect]
     Active Substance: PROPOFOL
     Dosage: UNK (EMULSION FOR INJECTION/INFUSION)
     Route: 042
     Dates: start: 2006
  169. DOBUTAMINE [Suspect]
     Active Substance: DOBUTAMINE HYDROCHLORIDE
     Indication: Pneumonia
     Dosage: UNK
     Route: 065
     Dates: start: 2006
  170. DOBUTAMINE [Suspect]
     Active Substance: DOBUTAMINE HYDROCHLORIDE
     Indication: Ill-defined disorder
     Dosage: UNK
     Route: 042
     Dates: start: 2006
  171. DOBUTAMINE [Suspect]
     Active Substance: DOBUTAMINE HYDROCHLORIDE
     Dosage: UNK
     Route: 065
  172. DOBUTAMINE [Suspect]
     Active Substance: DOBUTAMINE HYDROCHLORIDE
     Dosage: UNK, INTRAVENOUS DRIP
     Route: 042
     Dates: start: 2006
  173. DOBUTAMINE [Suspect]
     Active Substance: DOBUTAMINE HYDROCHLORIDE
     Dosage: 230 UNK
     Route: 065
  174. DOBUTAMINE [Suspect]
     Active Substance: DOBUTAMINE HYDROCHLORIDE
     Dosage: UNK (SOLUTION FOR INFUSION)
     Route: 065
     Dates: start: 2006
  175. SODIUM BICARBONATE [Suspect]
     Active Substance: SODIUM BICARBONATE
     Indication: Ill-defined disorder
     Dosage: 100 MILLILITER HOURLY
     Route: 042
  176. SODIUM BICARBONATE [Suspect]
     Active Substance: SODIUM BICARBONATE
     Dosage: 100 MILLIGRAM,, 1 DOSE HOURLY
     Route: 042
  177. SODIUM BICARBONATE [Suspect]
     Active Substance: SODIUM BICARBONATE
     Dosage: 100 MILLIGRAM, 100 MG EVERY HOUR
     Route: 042
  178. SODIUM BICARBONATE [Suspect]
     Active Substance: SODIUM BICARBONATE
     Dosage: 100 UNK
     Route: 042
  179. SODIUM BICARBONATE [Suspect]
     Active Substance: SODIUM BICARBONATE
     Dosage: 100 MILLIGRAM, QOW
     Route: 042
  180. SODIUM BICARBONATE [Suspect]
     Active Substance: SODIUM BICARBONATE
     Dosage: 100 MILLIGRAM, ADMINISTRATION OVER AN HOUR
     Route: 042
     Dates: start: 2006
  181. SODIUM BICARBONATE [Suspect]
     Active Substance: SODIUM BICARBONATE
     Dosage: 200 MILLIGRAM EVERY WEEK
     Route: 042
     Dates: start: 2006
  182. MAGNESIUM SULFATE [Suspect]
     Active Substance: MAGNESIUM SULFATE
     Indication: Ill-defined disorder
     Dosage: 10ML/50% (8MMOLS/50MLS )
     Route: 065
     Dates: start: 2006
  183. MAGNESIUM SULFATE [Suspect]
     Active Substance: MAGNESIUM SULFATE
     Indication: Pneumonia
     Dosage: UNK
     Route: 065
     Dates: start: 2006
  184. MAGNESIUM SULFATE [Suspect]
     Active Substance: MAGNESIUM SULFATE
     Dosage: 10ML/50% (8MMOLS/50MLS )
     Route: 061
     Dates: start: 2006
  185. MAGNESIUM SULFATE [Suspect]
     Active Substance: MAGNESIUM SULFATE
     Dosage: UNK
     Route: 065
  186. MAGNESIUM SULFATE [Suspect]
     Active Substance: MAGNESIUM SULFATE
     Dosage: 239 DOSAGE FORM
     Route: 065
  187. MAGNESIUM SULFATE [Suspect]
     Active Substance: MAGNESIUM SULFATE
     Dosage: 10 MILLILITER (INFUSION)
     Route: 065
     Dates: start: 2006
  188. TRICLOSAN [Suspect]
     Active Substance: TRICLOSAN
     Indication: Pneumonia
     Dosage: UNK
     Route: 065
  189. TRICLOSAN [Suspect]
     Active Substance: TRICLOSAN
     Indication: Ill-defined disorder
     Dosage: UNK
     Route: 065
  190. TRICLOSAN [Suspect]
     Active Substance: TRICLOSAN
     Dosage: UNK
     Route: 065
  191. TRICLOSAN [Suspect]
     Active Substance: TRICLOSAN
     Dosage: UNK
     Route: 065
     Dates: start: 2006
  192. TRICLOSAN [Suspect]
     Active Substance: TRICLOSAN
     Dosage: 24 DOSAGE FORM
     Route: 003
  193. TRICLOSAN [Suspect]
     Active Substance: TRICLOSAN
     Dosage: 24 DOSAGE FORM
     Route: 003
     Dates: start: 2006
  194. TRICLOSAN [Suspect]
     Active Substance: TRICLOSAN
     Dosage: 24 UNK
     Route: 065
  195. TRICLOSAN [Suspect]
     Active Substance: TRICLOSAN
     Dosage: 24 DOSAGE FORM
     Route: 065
     Dates: start: 2006
  196. TRICLOSAN [Suspect]
     Active Substance: TRICLOSAN
     Dosage: UNK
     Route: 003
     Dates: start: 2006
  197. TRICLOSAN [Suspect]
     Active Substance: TRICLOSAN
     Dosage: 1 GRAM, QD
     Route: 042
  198. ALFENTANIL [Suspect]
     Active Substance: ALFENTANIL
     Indication: Ill-defined disorder
     Dosage: UNK
     Route: 042
  199. ALFENTANIL [Suspect]
     Active Substance: ALFENTANIL
     Indication: Pneumonia
     Dosage: 120 DOSAGE FORM
     Route: 042
     Dates: start: 2006
  200. ALFENTANIL [Suspect]
     Active Substance: ALFENTANIL
     Dosage: 120 DOSAGE FORM
     Route: 065
  201. ALFENTANIL [Suspect]
     Active Substance: ALFENTANIL
     Dosage: 120 DOSAGE FORM
     Route: 042
  202. ALFENTANIL [Suspect]
     Active Substance: ALFENTANIL
     Dosage: UNK
     Route: 042
     Dates: start: 2006
  203. ALFENTANIL [Suspect]
     Active Substance: ALFENTANIL
     Dosage: UNK
     Route: 065
  204. ALFENTANIL [Suspect]
     Active Substance: ALFENTANIL
     Dosage: 120 DOSAGE FORM, INFUSION;
     Route: 042
  205. ALFENTANIL [Suspect]
     Active Substance: ALFENTANIL
     Dosage: UNK
     Route: 061
  206. ALFENTANIL [Suspect]
     Active Substance: ALFENTANIL
     Dosage: UNK
     Route: 042
     Dates: start: 2006
  207. ALFENTANIL [Suspect]
     Active Substance: ALFENTANIL
     Dosage: UNK
     Route: 042
  208. ALFENTANIL [Suspect]
     Active Substance: ALFENTANIL
     Dosage: UNK
     Route: 065
  209. ALFENTANIL [Suspect]
     Active Substance: ALFENTANIL
     Dosage: UNK
     Route: 042
  210. ALFENTANIL [Suspect]
     Active Substance: ALFENTANIL
     Dosage: UNK
     Route: 042
  211. ENOXAPARIN SODIUM [Suspect]
     Active Substance: ENOXAPARIN SODIUM
     Indication: Pneumonia
     Dosage: 20 MILLIGRAM, QD
     Route: 058
     Dates: start: 2006
  212. ENOXAPARIN SODIUM [Suspect]
     Active Substance: ENOXAPARIN SODIUM
     Indication: Ill-defined disorder
     Dosage: 20 MILLIGRAM, QD
     Route: 058
     Dates: start: 2006
  213. ENOXAPARIN SODIUM [Suspect]
     Active Substance: ENOXAPARIN SODIUM
     Dosage: 20 MILLIGRAM, QD
     Route: 048
     Dates: start: 2006
  214. ENOXAPARIN SODIUM [Suspect]
     Active Substance: ENOXAPARIN SODIUM
     Dosage: UNK
     Route: 065
     Dates: start: 2006
  215. ENOXAPARIN SODIUM [Suspect]
     Active Substance: ENOXAPARIN SODIUM
     Dosage: 20 MILLIGRAM, QD
     Route: 065
  216. ENOXAPARIN SODIUM [Suspect]
     Active Substance: ENOXAPARIN SODIUM
     Dosage: UNK
     Route: 058
  217. ENOXAPARIN SODIUM [Suspect]
     Active Substance: ENOXAPARIN SODIUM
     Dosage: 20 MILLIGRAM, QD
     Route: 058
  218. ENOXAPARIN SODIUM [Suspect]
     Active Substance: ENOXAPARIN SODIUM
     Dosage: 20 MILLIGRAM, QD (SOLUTION FOR INJECTION)
     Route: 065
  219. ENOXAPARIN SODIUM [Suspect]
     Active Substance: ENOXAPARIN SODIUM
     Dosage: UNK
     Route: 065
  220. TINZAPARIN [Suspect]
     Active Substance: TINZAPARIN
     Indication: Ill-defined disorder
     Dosage: 3500 MICROLITER, QD
     Route: 065
     Dates: start: 2006
  221. TINZAPARIN [Suspect]
     Active Substance: TINZAPARIN
     Indication: Pneumonia
     Dosage: 3500 MICROLITER, QD
     Route: 065
     Dates: start: 2006
  222. TINZAPARIN [Suspect]
     Active Substance: TINZAPARIN
     Dosage: 4 MILLILITER, QD
     Route: 065
  223. TINZAPARIN [Suspect]
     Active Substance: TINZAPARIN
     Dosage: 3.5 MILLICURIE
     Route: 065
  224. TINZAPARIN [Suspect]
     Active Substance: TINZAPARIN
     Dosage: 3500 MICROLITER,, 1 DF DAILY
     Route: 065
     Dates: start: 2006
  225. TINZAPARIN [Suspect]
     Active Substance: TINZAPARIN
     Dosage: 3500 MICROGRAM, QD
     Route: 065
     Dates: start: 2006
  226. TINZAPARIN [Suspect]
     Active Substance: TINZAPARIN
     Dosage: UNK
     Route: 065
  227. NOREPINEPHRINE [Suspect]
     Active Substance: NOREPINEPHRINE
     Indication: Pneumonia
     Dosage: UNK
     Route: 065
  228. NOREPINEPHRINE [Suspect]
     Active Substance: NOREPINEPHRINE
     Indication: Ill-defined disorder
     Dosage: UNK
     Route: 065
  229. NOREPINEPHRINE [Suspect]
     Active Substance: NOREPINEPHRINE
     Indication: Product used for unknown indication
     Dosage: UNK
     Route: 065
     Dates: start: 2006
  230. NOREPINEPHRINE [Suspect]
     Active Substance: NOREPINEPHRINE
     Dosage: UNK (FORM: SOLUTION FOR INJECTION)
     Route: 065
     Dates: start: 2006
  231. NOREPINEPHRINE [Suspect]
     Active Substance: NOREPINEPHRINE
     Dosage: UNK UNK, QD
     Route: 065
     Dates: start: 2006
  232. NOREPINEPHRINE [Suspect]
     Active Substance: NOREPINEPHRINE
     Dosage: UNK (FORM: SOLUTION FOR INJECTION)
     Route: 065
  233. NOREPINEPHRINE [Suspect]
     Active Substance: NOREPINEPHRINE
     Dosage: 1 DOSAGE FORM, QD
     Route: 065
     Dates: start: 2006
  234. FUROSEMIDE [Suspect]
     Active Substance: FUROSEMIDE
     Indication: Ill-defined disorder
     Dosage: 20 MILLIGRAM, BID
     Route: 042
  235. FUROSEMIDE [Suspect]
     Active Substance: FUROSEMIDE
     Indication: Pneumonia
     Dosage: 200 MILLIGRAM, QD
     Route: 048
     Dates: start: 2006
  236. FUROSEMIDE [Suspect]
     Active Substance: FUROSEMIDE
     Dosage: UNK (FORM: SOLUTION FOR INFUSION)
     Route: 065
     Dates: start: 2006
  237. FUROSEMIDE [Suspect]
     Active Substance: FUROSEMIDE
     Dosage: 20 MILLIGRAM, QD (FORM: SOLUTION FOR INFUSION)
     Route: 065
     Dates: start: 2006
  238. FUROSEMIDE [Suspect]
     Active Substance: FUROSEMIDE
     Dosage: 20 MILLIGRAM, BID (FORM: SOLUTION FOR INFUSION)
     Route: 065
     Dates: start: 2006
  239. FUROSEMIDE [Suspect]
     Active Substance: FUROSEMIDE
     Dosage: 20 MILLIGRAM, BID (FORM: SOLUTION FOR INFUSION)
     Route: 042
     Dates: start: 2006
  240. FUROSEMIDE [Suspect]
     Active Substance: FUROSEMIDE
     Dosage: 20 MILLIGRAM, QD
     Route: 048
  241. FUROSEMIDE [Suspect]
     Active Substance: FUROSEMIDE
     Dosage: 20 MILLIGRAM, QD, 20 MG 2 X DAILY,SOLUTION FOR INJECTION
     Route: 042
     Dates: start: 2006
  242. FUROSEMIDE [Suspect]
     Active Substance: FUROSEMIDE
     Dosage: UNK
     Route: 065
  243. FUROSEMIDE [Suspect]
     Active Substance: FUROSEMIDE
     Dosage: UNK (SOLUTION FOR INJECTION)
     Route: 042
  244. FUROSEMIDE [Suspect]
     Active Substance: FUROSEMIDE
     Dosage: 20 MILLIGRAM, BID
     Route: 048
     Dates: start: 2006
  245. FUROSEMIDE [Suspect]
     Active Substance: FUROSEMIDE
     Dosage: 20 MILLIGRAM, QD
     Route: 048
  246. FUROSEMIDE [Suspect]
     Active Substance: FUROSEMIDE
     Dosage: 40 MILLIGRAM, 20 MG, BID
     Route: 048
     Dates: start: 2006
  247. FUROSEMIDE [Suspect]
     Active Substance: FUROSEMIDE
     Dosage: 20 MILLIGRAM, BID,, 1 DOSE 12 HOURS
     Route: 042
     Dates: start: 2006
  248. FUROSEMIDE [Suspect]
     Active Substance: FUROSEMIDE
     Dosage: 40 MILLIGRAM, QD
     Route: 042
  249. FUROSEMIDE [Suspect]
     Active Substance: FUROSEMIDE
     Dosage: 2 MILLIGRAM, QD
     Route: 042
     Dates: start: 2006
  250. SODIUM BICARBONATE [Suspect]
     Active Substance: SODIUM BICARBONATE
     Indication: Pneumonia
     Dosage: 100 MILLIGRAM (100 MG,BIWEEKLY)
     Route: 042
  251. SODIUM BICARBONATE [Suspect]
     Active Substance: SODIUM BICARBONATE
     Indication: Ill-defined disorder
     Dosage: 100 MILLIGRAM (100 MG,BIWEEKLY)
     Route: 042
  252. SODIUM BICARBONATE [Suspect]
     Active Substance: SODIUM BICARBONATE
     Dosage: 100 MILLIGRAM
     Route: 042
  253. SODIUM BICARBONATE [Suspect]
     Active Substance: SODIUM BICARBONATE
     Dosage: UNK
     Route: 065
  254. SODIUM BICARBONATE [Suspect]
     Active Substance: SODIUM BICARBONATE
     Dosage: 100 MILLILITER QH
     Route: 042
  255. SODIUM BICARBONATE [Suspect]
     Active Substance: SODIUM BICARBONATE
     Dosage: 100 MILLIGRAM EVERY HOUR
     Route: 042
     Dates: start: 2006
  256. SODIUM BICARBONATE [Suspect]
     Active Substance: SODIUM BICARBONATE
     Dosage: 100 MILLIGRAM EVERY HOUR
     Route: 042
  257. POTASSIUM BICARBONATE\POTASSIUM CHLORIDE [Suspect]
     Active Substance: POTASSIUM BICARBONATE\POTASSIUM CHLORIDE
     Indication: Pneumonia
     Dosage: 2 DOSAGE FORM, TID (6DF QD)
     Route: 065
     Dates: start: 2006
  258. POTASSIUM BICARBONATE\POTASSIUM CHLORIDE [Suspect]
     Active Substance: POTASSIUM BICARBONATE\POTASSIUM CHLORIDE
     Indication: Ill-defined disorder
     Dosage: 2 DOSAGE FORM, QD
     Route: 065
     Dates: start: 2006
  259. POTASSIUM BICARBONATE\POTASSIUM CHLORIDE [Suspect]
     Active Substance: POTASSIUM BICARBONATE\POTASSIUM CHLORIDE
     Dosage: UNK UNK, TID
     Route: 065
  260. POTASSIUM BICARBONATE\POTASSIUM CHLORIDE [Suspect]
     Active Substance: POTASSIUM BICARBONATE\POTASSIUM CHLORIDE
     Dosage: 6 DOSAGE FORM, QD
     Route: 065
     Dates: start: 2006
  261. POTASSIUM BICARBONATE\POTASSIUM CHLORIDE [Suspect]
     Active Substance: POTASSIUM BICARBONATE\POTASSIUM CHLORIDE
     Dosage: 40MMOLS/100ML INFUSION , TID
     Route: 065
  262. POTASSIUM BICARBONATE\POTASSIUM CHLORIDE [Suspect]
     Active Substance: POTASSIUM BICARBONATE\POTASSIUM CHLORIDE
     Dosage: 2 DOSAGE FORM, TID, DAILY DOSE: 6 DOSAGE FORM
     Route: 061
  263. POTASSIUM BICARBONATE\POTASSIUM CHLORIDE [Suspect]
     Active Substance: POTASSIUM BICARBONATE\POTASSIUM CHLORIDE
     Dosage: 6 DOSAGE FORM, QD,2 DL 3/1DAYS
     Route: 061
  264. POTASSIUM BICARBONATE\POTASSIUM CHLORIDE [Suspect]
     Active Substance: POTASSIUM BICARBONATE\POTASSIUM CHLORIDE
     Dosage: UNK, , THREE TIMES A DAY;
     Route: 065
  265. POTASSIUM BICARBONATE\POTASSIUM CHLORIDE [Suspect]
     Active Substance: POTASSIUM BICARBONATE\POTASSIUM CHLORIDE
     Dosage: UNK UNK, QD
     Route: 065
     Dates: start: 2006
  266. POTASSIUM BICARBONATE\POTASSIUM CHLORIDE [Suspect]
     Active Substance: POTASSIUM BICARBONATE\POTASSIUM CHLORIDE
     Dosage: 2 DOSAGE FORM, QD
     Route: 065
  267. POTASSIUM BICARBONATE\POTASSIUM CHLORIDE [Suspect]
     Active Substance: POTASSIUM BICARBONATE\POTASSIUM CHLORIDE
     Dosage: 2 DOSAGE FORM, TID, DAILY DOSE: 6 DOSAGE FORM
     Route: 061
     Dates: start: 2006
  268. POTASSIUM PHOSPHATE [Suspect]
     Active Substance: POTASSIUM PHOSPHATE
     Indication: Pneumonia
     Dosage: UNK
     Route: 065
     Dates: start: 2006
  269. POTASSIUM PHOSPHATE [Suspect]
     Active Substance: POTASSIUM PHOSPHATE
     Indication: Ill-defined disorder
     Dosage: UNK
     Route: 065
  270. POTASSIUM PHOSPHATE [Suspect]
     Active Substance: POTASSIUM PHOSPHATE
     Dosage: UNK, 40MMOLS/100ML INFUSION
     Route: 065
     Dates: start: 2006
  271. LACTULOSE [Suspect]
     Active Substance: LACTULOSE
     Indication: Product used for unknown indication
     Dosage: 10 MILLILITER
     Route: 005
     Dates: start: 2006
  272. LACTULOSE [Suspect]
     Active Substance: LACTULOSE
     Indication: Ill-defined disorder
     Dosage: 3 GRAM
     Route: 065
  273. LACTULOSE [Suspect]
     Active Substance: LACTULOSE
     Indication: Pneumonia
     Dosage: 1 MILLILITER, QD
     Route: 065
     Dates: start: 2006
  274. LACTULOSE [Suspect]
     Active Substance: LACTULOSE
     Dosage: UNK
     Route: 065
  275. LACTULOSE [Suspect]
     Active Substance: LACTULOSE
     Dosage: 10 MILLILITER
     Route: 050
  276. LACTULOSE [Suspect]
     Active Substance: LACTULOSE
     Dosage: 10 MILLILITER,NASOGASTRIC
     Dates: start: 2006
  277. LACTULOSE [Suspect]
     Active Substance: LACTULOSE
     Dosage: 10 MILLILITER
     Route: 050
  278. LACTULOSE [Suspect]
     Active Substance: LACTULOSE
     Dosage: 10 MILLILITER
     Route: 065
  279. LACTULOSE [Suspect]
     Active Substance: LACTULOSE
     Dosage: 1 MILLILITER, QD
     Route: 065
     Dates: start: 2006
  280. LACTULOSE [Suspect]
     Active Substance: LACTULOSE
     Dosage: 0 MILLIGRAM
     Route: 065
  281. THIAMINE [Suspect]
     Active Substance: THIAMINE
     Indication: Pneumonia
     Dosage: 100 MILLIGRAM, QD
     Route: 048
  282. THIAMINE [Suspect]
     Active Substance: THIAMINE
     Indication: Ill-defined disorder
     Dosage: UNK
     Route: 065
  283. THIAMINE [Suspect]
     Active Substance: THIAMINE
     Dosage: 100 MILLIGRAM, QD
     Route: 048
     Dates: start: 2006
  284. THIAMINE [Suspect]
     Active Substance: THIAMINE
     Dosage: 100 MILLIGRAM, QD
     Route: 042
     Dates: start: 2006
  285. THIAMINE [Suspect]
     Active Substance: THIAMINE
     Dosage: 100 MILLIGRAM, BID
     Route: 048
  286. THIAMINE [Suspect]
     Active Substance: THIAMINE
     Dosage: 100 MILLIGRAM, TID
     Route: 048
  287. FLUCONAZOLE [Suspect]
     Active Substance: FLUCONAZOLE
     Indication: Pneumonia
     Dosage: 200 MILLIGRAM, QD
     Route: 042
  288. FLUCONAZOLE [Suspect]
     Active Substance: FLUCONAZOLE
     Indication: Ill-defined disorder
     Dosage: 200 MILLIGRAM, QD
     Route: 042
     Dates: start: 2006
  289. FLUCONAZOLE [Suspect]
     Active Substance: FLUCONAZOLE
     Dosage: 230 DOSAGE FORM
     Route: 042
  290. FLUCONAZOLE [Suspect]
     Active Substance: FLUCONAZOLE
     Dosage: 20 MG, QD
     Route: 065
  291. FLUCONAZOLE [Suspect]
     Active Substance: FLUCONAZOLE
     Dosage: UNK
     Route: 065
  292. BACTROBAN [Suspect]
     Active Substance: MUPIROCIN\MUPIROCIN CALCIUM
     Indication: Pneumonia
     Dosage: UNK
     Route: 065
     Dates: start: 2006
  293. BACTROBAN [Suspect]
     Active Substance: MUPIROCIN\MUPIROCIN CALCIUM
     Indication: Ill-defined disorder
     Dosage: UNK,50 UNITS/50ML
     Route: 042
     Dates: start: 2006
  294. BACTROBAN [Suspect]
     Active Substance: MUPIROCIN\MUPIROCIN CALCIUM
     Dosage: UNK
     Route: 065
     Dates: start: 2006
  295. BACTROBAN [Suspect]
     Active Substance: MUPIROCIN\MUPIROCIN CALCIUM
     Dosage: 10ML/50% 8MMOLS/50MLS
     Route: 065
     Dates: start: 2006
  296. BACTROBAN [Suspect]
     Active Substance: MUPIROCIN\MUPIROCIN CALCIUM
     Dosage: UNK
     Route: 065
  297. BACTROBAN [Suspect]
     Active Substance: MUPIROCIN\MUPIROCIN CALCIUM
     Dosage: UNK, OINTMENT
     Route: 065
     Dates: start: 2006
  298. HEPARIN SODIUM [Suspect]
     Active Substance: HEPARIN SODIUM
     Indication: Product used for unknown indication
     Dosage: 3500 MICROGRAM, QD (4 MICROGRAM)
     Route: 065
  299. HEPARIN SODIUM [Suspect]
     Active Substance: HEPARIN SODIUM
     Indication: Ill-defined disorder
     Dosage: 3500 MICROGRAM, QD
     Route: 065
  300. SODIUM CHLORIDE [Suspect]
     Active Substance: SODIUM CHLORIDE
     Indication: Ill-defined disorder
     Dosage: 0.9 PERCENT
     Route: 042
     Dates: start: 2006
  301. SODIUM CHLORIDE [Suspect]
     Active Substance: SODIUM CHLORIDE
     Indication: Pneumonia
     Dosage: UNK
     Route: 065
     Dates: start: 2006
  302. SODIUM CHLORIDE [Suspect]
     Active Substance: SODIUM CHLORIDE
     Dosage: 0.9 PERCENT, QD
     Route: 042
     Dates: start: 2006
  303. SODIUM CHLORIDE [Suspect]
     Active Substance: SODIUM CHLORIDE
     Dosage: UNK
     Route: 065
     Dates: start: 2006
  304. SODIUM CHLORIDE [Suspect]
     Active Substance: SODIUM CHLORIDE
     Dosage: 0.9 PERCENT, QD
     Route: 042
     Dates: start: 2006
  305. SODIUM CHLORIDE [Suspect]
     Active Substance: SODIUM CHLORIDE
     Dosage: 1 PERCENT, QD
     Route: 042
     Dates: start: 2006
  306. SODIUM CHLORIDE [Suspect]
     Active Substance: SODIUM CHLORIDE
     Dosage: UNK
     Route: 042
     Dates: start: 2006
  307. SODIUM CHLORIDE [Suspect]
     Active Substance: SODIUM CHLORIDE
     Dosage: 1 PERCENT
     Route: 042
     Dates: start: 2006
  308. SODIUM CHLORIDE [Suspect]
     Active Substance: SODIUM CHLORIDE
     Dosage: 0.9 PERCENT, SOLUTION
     Route: 042
  309. ACTRAPID [Suspect]
     Active Substance: INSULIN HUMAN
     Indication: Toxic epidermal necrolysis
     Dosage: 50 UNITS/50ML
     Route: 042
  310. ACTRAPID [Suspect]
     Active Substance: INSULIN HUMAN
     Indication: Pneumonia
     Dosage: 50 UNITS/50ML
     Route: 042
  311. ACTRAPID [Suspect]
     Active Substance: INSULIN HUMAN
     Dosage: 50 UNITS/50ML
     Route: 042
     Dates: start: 2006
  312. ACTRAPID [Suspect]
     Active Substance: INSULIN HUMAN
     Dosage: UNK
     Route: 042
  313. ACTRAPID [Suspect]
     Active Substance: INSULIN HUMAN
     Dosage: UNK
     Route: 042
  314. ACTRAPID [Suspect]
     Active Substance: INSULIN HUMAN
     Dosage: UNK, 50 UNITS/50ML, SOLUTION FOR INFUSION
     Route: 042
     Dates: start: 2006
  315. ACTRAPID [Suspect]
     Active Substance: INSULIN HUMAN
     Dosage: UNK
     Route: 065
  316. ACTRAPID [Suspect]
     Active Substance: INSULIN HUMAN
     Dosage: UNK
     Route: 065
  317. ACTRAPID [Suspect]
     Active Substance: INSULIN HUMAN
     Dosage: UNK
     Route: 042
     Dates: start: 2006
  318. ACTRAPID [Suspect]
     Active Substance: INSULIN HUMAN
     Dosage: UNK,50 UNITS/50ML (124 DOSAGE FORM- INTRAVENOUS INFUSION); ;
     Route: 042
     Dates: start: 2006
  319. ACTRAPID [Suspect]
     Active Substance: INSULIN HUMAN
     Dosage: 124 DOSAGE FORM
     Route: 042
  320. CANRENOATE POTASSIUM [Suspect]
     Active Substance: CANRENOATE POTASSIUM
     Indication: Ill-defined disorder
     Dosage: UNK
     Route: 065
  321. ANHYDROUS CITRIC ACID [Suspect]
     Active Substance: ANHYDROUS CITRIC ACID
     Indication: Pneumonia
     Dosage: 100 MILLIGRAM, QD
     Route: 048
  322. ANHYDROUS CITRIC ACID [Suspect]
     Active Substance: ANHYDROUS CITRIC ACID
     Indication: Ill-defined disorder
     Dosage: 100 MILLIGRAM, QD
     Route: 048
     Dates: start: 2006
  323. ANHYDROUS CITRIC ACID [Suspect]
     Active Substance: ANHYDROUS CITRIC ACID
     Dosage: 100 MILLIGRAM
     Route: 048
  324. ANHYDROUS CITRIC ACID [Suspect]
     Active Substance: ANHYDROUS CITRIC ACID
     Dosage: UNK
     Route: 065
     Dates: start: 2006
  325. ANHYDROUS CITRIC ACID [Suspect]
     Active Substance: ANHYDROUS CITRIC ACID
     Dosage: 100 MILLIGRAM
     Route: 065
  326. ANHYDROUS CITRIC ACID [Suspect]
     Active Substance: ANHYDROUS CITRIC ACID
     Dosage: 100 MILLIGRAM (EFFERVESCENT POWDER)
     Route: 048
     Dates: start: 2006
  327. ANHYDROUS CITRIC ACID [Suspect]
     Active Substance: ANHYDROUS CITRIC ACID
     Dosage: 100 MILLIGRAM, QD
     Route: 048
  328. VITAMIN B [Suspect]
     Active Substance: VITAMIN B
     Indication: Ill-defined disorder
     Dosage: UNK
     Route: 065
  329. HEPARIN CALCIUM [Suspect]
     Active Substance: HEPARIN CALCIUM
     Indication: Ill-defined disorder
     Dosage: UNK
     Route: 065
  330. HEPARIN CALCIUM [Suspect]
     Active Substance: HEPARIN CALCIUM
     Dosage: UNK
     Route: 065
     Dates: start: 2006
  331. PHYTONADIONE [Suspect]
     Active Substance: PHYTONADIONE
     Indication: Pneumonia
     Dosage: UNK
     Route: 065
     Dates: start: 2006
  332. PHYTONADIONE [Suspect]
     Active Substance: PHYTONADIONE
     Indication: Ill-defined disorder
     Dosage: UNK
     Route: 065
  333. PHYTONADIONE [Suspect]
     Active Substance: PHYTONADIONE
     Dosage: UNK
     Route: 065
  334. RIBOFLAVIN [Suspect]
     Active Substance: RIBOFLAVIN
     Indication: Ill-defined disorder
     Dosage: UNK
     Route: 065
  335. CANRENOIC ACID [Suspect]
     Active Substance: CANRENOIC ACID
     Indication: Ill-defined disorder
     Dosage: UNK
     Route: 065
  336. CHLORPHENIRAMINE MALEATE [Suspect]
     Active Substance: CHLORPHENIRAMINE MALEATE
     Indication: Pneumonia
     Dosage: 10 MG, QD
     Route: 042
  337. CHLORPHENIRAMINE MALEATE [Suspect]
     Active Substance: CHLORPHENIRAMINE MALEATE
     Indication: Toxic epidermal necrolysis
     Dosage: 40 MG, QD (10 MG, QID)
     Route: 042
     Dates: start: 2006
  338. CHLORPHENIRAMINE MALEATE [Suspect]
     Active Substance: CHLORPHENIRAMINE MALEATE
     Indication: Ill-defined disorder
     Dosage: 10 MG, QID
     Route: 042
     Dates: start: 2006
  339. CHLORPHENIRAMINE MALEATE [Suspect]
     Active Substance: CHLORPHENIRAMINE MALEATE
     Dosage: 10 MG, QID
     Route: 042
     Dates: start: 2006
  340. CHLORPHENIRAMINE MALEATE [Suspect]
     Active Substance: CHLORPHENIRAMINE MALEATE
     Dosage: 10 MG, QID
     Route: 042
     Dates: start: 2006
  341. CHLORPHENIRAMINE MALEATE [Suspect]
     Active Substance: CHLORPHENIRAMINE MALEATE
     Dosage: 40 MG, QD (10 MG, QID)
     Route: 042
     Dates: start: 2006
  342. CITRIC ACID MONOHYDRATE\SODIUM BICARBONATE\TARTARIC ACID [Suspect]
     Active Substance: CITRIC ACID MONOHYDRATE\SODIUM BICARBONATE\TARTARIC ACID
     Indication: Ill-defined disorder
     Dosage: UNK
     Route: 065
  343. CITRIC ACID MONOHYDRATE\SODIUM BICARBONATE\TARTARIC ACID [Suspect]
     Active Substance: CITRIC ACID MONOHYDRATE\SODIUM BICARBONATE\TARTARIC ACID
     Indication: Pneumonia
     Dosage: 100 MG, QD
     Route: 048
     Dates: start: 2006
  344. ASPIRIN [Suspect]
     Active Substance: ASPIRIN
     Indication: Ill-defined disorder
     Dosage: UNK
     Route: 048
  345. GLUTAMIC ACID HYDROCHLORIDE [Suspect]
     Active Substance: GLUTAMIC ACID HYDROCHLORIDE
     Indication: Ill-defined disorder
     Dosage: UNK
     Route: 065
  346. GLUTAMIC ACID HYDROCHLORIDE [Suspect]
     Active Substance: GLUTAMIC ACID HYDROCHLORIDE
     Dosage: 10 MILLILITER, QD
     Route: 065
     Dates: start: 2006
  347. INNOHEP [Suspect]
     Active Substance: TINZAPARIN SODIUM
     Indication: Ill-defined disorder
     Dosage: 3500 MICROGRAM, QD
     Route: 065
     Dates: start: 2006
  348. INNOHEP [Suspect]
     Active Substance: TINZAPARIN SODIUM
     Dosage: 3.5 MILLILITER, QD
     Route: 065
     Dates: start: 2006
  349. INNOHEP [Suspect]
     Active Substance: TINZAPARIN SODIUM
     Dosage: 4 MILLILITER, QD
     Route: 065
     Dates: start: 2006
  350. INNOHEP [Suspect]
     Active Substance: TINZAPARIN SODIUM
     Dosage: 3500 DOSAGE FORM, QD
     Route: 065
     Dates: start: 2006
  351. CIPROFLOXACIN HYDROCHLORIDE [Suspect]
     Active Substance: CIPROFLOXACIN HYDROCHLORIDE
     Indication: Ill-defined disorder
     Dosage: UNK
     Route: 065
  352. CIPROFLOXACIN HYDROCHLORIDE [Suspect]
     Active Substance: CIPROFLOXACIN HYDROCHLORIDE
     Dosage: 400 MILLIGRAM, QD
     Route: 042
  353. CIPROFLOXACIN HYDROCHLORIDE [Suspect]
     Active Substance: CIPROFLOXACIN HYDROCHLORIDE
     Dosage: 400 MILLIGRAM, QD
     Route: 042
  354. MAGNESIUM HYDROXIDE [Suspect]
     Active Substance: MAGNESIUM HYDROXIDE
     Indication: Pneumonia
     Dosage: UNK
     Route: 065
  355. MAGNESIUM HYDROXIDE [Suspect]
     Active Substance: MAGNESIUM HYDROXIDE
     Indication: Ill-defined disorder
     Dosage: UNK UNK (,(10ML/50% 8MMOLS/50MLS)
     Route: 061
     Dates: start: 2006
  356. MUPIROCIN CALCIUM [Suspect]
     Active Substance: MUPIROCIN CALCIUM
     Indication: Ill-defined disorder
     Dosage: UNK
     Route: 065
  357. MUPIROCIN CALCIUM [Suspect]
     Active Substance: MUPIROCIN CALCIUM
     Indication: Pneumonia
     Dosage: UNK UNK (10ML/50% 8MMOLS/50MLS)
     Route: 042
     Dates: start: 2006
  358. NICOTINAMIDE [Suspect]
     Active Substance: NIACINAMIDE
     Indication: Ill-defined disorder
     Dosage: UNK
     Route: 065
  359. NICOTINAMIDE [Suspect]
     Active Substance: NIACINAMIDE
     Dosage: UNK (SOLUTION FOR INJECTION)
     Route: 065
     Dates: start: 2006
  360. SULFADIAZINE [Suspect]
     Active Substance: SULFADIAZINE
     Indication: Ill-defined disorder
     Dosage: UNK
     Route: 065
  361. SULFADIAZINE [Suspect]
     Active Substance: SULFADIAZINE
     Dosage: UNK
     Route: 061
     Dates: start: 2006
  362. SULFADIAZINE [Suspect]
     Active Substance: SULFADIAZINE
     Dosage: UNK
     Route: 061
  363. SULFADIAZINE [Suspect]
     Active Substance: SULFADIAZINE
     Dosage: UNK (CREAM)
     Route: 061
     Dates: start: 2006
  364. ATROVENT [Concomitant]
     Active Substance: IPRATROPIUM BROMIDE
     Indication: Ill-defined disorder
     Dosage: UNK AS NECESSARY
     Route: 048
  365. ATROVENT [Concomitant]
     Active Substance: IPRATROPIUM BROMIDE
     Dosage: 1 DOSAGE FORM NEBULISER
     Route: 048
  366. ATROVENT [Concomitant]
     Active Substance: IPRATROPIUM BROMIDE
     Dosage: UNK
     Route: 065
  367. ATROVENT [Concomitant]
     Active Substance: IPRATROPIUM BROMIDE
     Dosage: UNK AS NECESSARY
     Route: 065
  368. ATROVENT [Concomitant]
     Active Substance: IPRATROPIUM BROMIDE
     Dosage: UNK
     Route: 065
  369. ATROVENT [Concomitant]
     Active Substance: IPRATROPIUM BROMIDE
     Dosage: UNK
     Route: 065
  370. ATROVENT [Concomitant]
     Active Substance: IPRATROPIUM BROMIDE
     Dosage: UNK
     Route: 065
  371. ATROVENT [Concomitant]
     Active Substance: IPRATROPIUM BROMIDE
     Dosage: 153 DOSAGE FORM, AS NECESSARY
     Route: 065
  372. ATROVENT [Concomitant]
     Active Substance: IPRATROPIUM BROMIDE
     Dosage: 153 DOSAGE FORM, AS NECESSARY
     Route: 048
  373. ATROVENT [Concomitant]
     Active Substance: IPRATROPIUM BROMIDE
     Dosage: 1 DOSAGE FORM, PRN
     Route: 065
  374. ATROVENT [Concomitant]
     Active Substance: IPRATROPIUM BROMIDE
     Dosage: UNK, PRN
     Route: 065
  375. ATROVENT [Concomitant]
     Active Substance: IPRATROPIUM BROMIDE
     Dosage: 1 DOSAGE FORM
     Route: 065
  376. ATROVENT [Concomitant]
     Active Substance: IPRATROPIUM BROMIDE
     Dosage: 1 DOSAGE FORM
     Route: 048
  377. ATROVENT [Concomitant]
     Active Substance: IPRATROPIUM BROMIDE
     Dosage: 100 MILLIGRAM (TWICE A WEEK)
     Route: 048
  378. PIPERACILLIN SODIUM\TAZOBACTAM SODIUM [Concomitant]
     Active Substance: PIPERACILLIN SODIUM\TAZOBACTAM SODIUM
     Indication: Product used for unknown indication
     Dosage: 13.5 GRAM, QD (4.5 MG TID)INCREASED TO 4 TIMES DAILY BETWEEN 04/10/2006 AND 09/10/2006
     Route: 065
  379. PIPERACILLIN SODIUM\TAZOBACTAM SODIUM [Concomitant]
     Active Substance: PIPERACILLIN SODIUM\TAZOBACTAM SODIUM
     Indication: Ill-defined disorder
     Dosage: 13.5 GRAM, QD (4.5 MG TID)INCREASED TO 4 TIMES DAILY BETWEEN 04/10/2006 AND 09/10/2006
     Route: 065
  380. PIPERACILLIN SODIUM\TAZOBACTAM SODIUM [Concomitant]
     Active Substance: PIPERACILLIN SODIUM\TAZOBACTAM SODIUM
     Dosage: 4.5 GRAM, QID
     Route: 042
     Dates: start: 20061004, end: 20061009
  381. PIPERACILLIN SODIUM\TAZOBACTAM SODIUM [Concomitant]
     Active Substance: PIPERACILLIN SODIUM\TAZOBACTAM SODIUM
     Dosage: 13.5 GRAM, QID
     Route: 042
     Dates: start: 20061004, end: 20061009
  382. PIPERACILLIN SODIUM\TAZOBACTAM SODIUM [Concomitant]
     Active Substance: PIPERACILLIN SODIUM\TAZOBACTAM SODIUM
     Dosage: 4.5 GRAM, TID
     Route: 042
     Dates: start: 20061004, end: 20061009
  383. PIPERACILLIN SODIUM\TAZOBACTAM SODIUM [Concomitant]
     Active Substance: PIPERACILLIN SODIUM\TAZOBACTAM SODIUM
     Dosage: 4.5 GRAM, QID
     Route: 042
     Dates: start: 20061004, end: 20061009
  384. PIPERACILLIN SODIUM\TAZOBACTAM SODIUM [Concomitant]
     Active Substance: PIPERACILLIN SODIUM\TAZOBACTAM SODIUM
     Dosage: 18 GRAM, QD
     Route: 042
     Dates: start: 20060104, end: 20060109
  385. PIPERACILLIN SODIUM\TAZOBACTAM SODIUM [Concomitant]
     Active Substance: PIPERACILLIN SODIUM\TAZOBACTAM SODIUM
     Dosage: 5 GRAM, TID
     Route: 065
  386. PIPERACILLIN SODIUM\TAZOBACTAM SODIUM [Concomitant]
     Active Substance: PIPERACILLIN SODIUM\TAZOBACTAM SODIUM
     Dosage: 5 GRAM, QID
     Route: 065
     Dates: start: 20060410, end: 20060910
  387. PIPERACILLIN SODIUM\TAZOBACTAM SODIUM [Concomitant]
     Active Substance: PIPERACILLIN SODIUM\TAZOBACTAM SODIUM
     Dosage: 4.5 GRAM, TID
     Route: 042
     Dates: start: 20061009
  388. PIPERACILLIN SODIUM\TAZOBACTAM SODIUM [Concomitant]
     Active Substance: PIPERACILLIN SODIUM\TAZOBACTAM SODIUM
     Dosage: 4.5 MILLIGRAM, TID
     Route: 065
  389. PIPERACILLIN SODIUM\TAZOBACTAM SODIUM [Concomitant]
     Active Substance: PIPERACILLIN SODIUM\TAZOBACTAM SODIUM
     Dosage: 5 GRAM, TID,1 DOSE 8 HOURS
     Route: 065
  390. PIPERACILLIN SODIUM\TAZOBACTAM SODIUM [Concomitant]
     Active Substance: PIPERACILLIN SODIUM\TAZOBACTAM SODIUM
     Dosage: 18 GRAM, QD
     Route: 042
     Dates: start: 20061004, end: 20061009
  391. PIPERACILLIN SODIUM\TAZOBACTAM SODIUM [Concomitant]
     Active Substance: PIPERACILLIN SODIUM\TAZOBACTAM SODIUM
     Dosage: 18 MILLIGRAM, INCREASED TO 4 TIMES DAILY BETWEEN 04/10/2006 AND 09/10/2006
     Route: 042
  392. PIPERACILLIN SODIUM\TAZOBACTAM SODIUM [Concomitant]
     Active Substance: PIPERACILLIN SODIUM\TAZOBACTAM SODIUM
     Dosage: 72 GRAM, QD
     Route: 042
     Dates: start: 20061004, end: 20061009
  393. PIPERACILLIN SODIUM\TAZOBACTAM SODIUM [Concomitant]
     Active Substance: PIPERACILLIN SODIUM\TAZOBACTAM SODIUM
     Dosage: 2 GRAM, QD
     Route: 065
     Dates: start: 20060410, end: 20061010
  394. PIPERACILLIN SODIUM\TAZOBACTAM SODIUM [Concomitant]
     Active Substance: PIPERACILLIN SODIUM\TAZOBACTAM SODIUM
     Dosage: 54 GRAM, TID
     Route: 042
     Dates: start: 20061004, end: 20061009
  395. VANCOMYCIN [Concomitant]
     Active Substance: VANCOMYCIN
     Indication: Product used for unknown indication
     Dosage: 1 GRAM, QD
     Route: 042
  396. VANCOMYCIN [Concomitant]
     Active Substance: VANCOMYCIN
     Indication: Ill-defined disorder
     Dosage: 1 UNK
     Route: 042
  397. VANCOMYCIN [Concomitant]
     Active Substance: VANCOMYCIN
     Dosage: 400 MG, QD
     Route: 042
  398. VANCOMYCIN [Concomitant]
     Active Substance: VANCOMYCIN
     Dosage: UNK
     Route: 065
  399. METOCLOPRAMIDE [Concomitant]
     Active Substance: METOCLOPRAMIDE
     Indication: Product used for unknown indication
     Dosage: 10 MILLIGRAM, QD
     Route: 042
  400. METOCLOPRAMIDE [Concomitant]
     Active Substance: METOCLOPRAMIDE
     Indication: Ill-defined disorder
     Dosage: 10 UNK
     Route: 042
  401. METOCLOPRAMIDE [Concomitant]
     Active Substance: METOCLOPRAMIDE
     Dosage: UNK
     Route: 065
  402. ASPIRIN [Concomitant]
     Active Substance: ASPIRIN
     Indication: Ill-defined disorder
     Dosage: UNK
     Route: 048
  403. ASPIRIN [Concomitant]
     Active Substance: ASPIRIN
     Dosage: UNK
     Route: 065
  404. ASPIRIN [Concomitant]
     Active Substance: ASPIRIN
     Dosage: 59 DOSAGE FORM
     Route: 048
  405. ASPIRIN [Concomitant]
     Active Substance: ASPIRIN
     Dosage: UNK
     Route: 048
  406. ASPIRIN [Concomitant]
     Active Substance: ASPIRIN
     Dosage: UNK (CAPSULE FORM)
     Route: 048
  407. ASPIRIN [Concomitant]
     Active Substance: ASPIRIN
     Dosage: (EFFERVESCENT TABLET)
     Route: 048
  408. ZOPICLONE [Concomitant]
     Active Substance: ZOPICLONE
     Indication: Ill-defined disorder
     Dosage: UNK
     Route: 048
  409. ZOPICLONE [Concomitant]
     Active Substance: ZOPICLONE
     Dosage: 245 DOSAGE FORM
     Route: 048
  410. AMOXICILLIN\CLAVULANATE POTASSIUM [Concomitant]
     Active Substance: AMOXICILLIN\CLAVULANATE POTASSIUM
     Indication: Product used for unknown indication
     Dosage: 375 MILLIGRAM, TID (1125 MG QD)
     Route: 065
     Dates: start: 20060913
  411. AMOXICILLIN\CLAVULANATE POTASSIUM [Concomitant]
     Active Substance: AMOXICILLIN\CLAVULANATE POTASSIUM
     Dosage: 250 MILLIGRAM
     Route: 048
  412. AMOXICILLIN\CLAVULANATE POTASSIUM [Concomitant]
     Active Substance: AMOXICILLIN\CLAVULANATE POTASSIUM
     Dosage: 875 MILLIGRAM, TID
     Route: 065
     Dates: start: 20060913
  413. AMOXICILLIN\CLAVULANATE POTASSIUM [Concomitant]
     Active Substance: AMOXICILLIN\CLAVULANATE POTASSIUM
     Dosage: 1125 MILLIGRAM
     Route: 065
  414. AMOXICILLIN\CLAVULANATE POTASSIUM [Concomitant]
     Active Substance: AMOXICILLIN\CLAVULANATE POTASSIUM
     Dosage: 375 UNK,DAILY DOSE TEXT: 375MG 3/1DAYS TID
     Route: 065
     Dates: start: 20060913
  415. AMOXICILLIN\CLAVULANATE POTASSIUM [Concomitant]
     Active Substance: AMOXICILLIN\CLAVULANATE POTASSIUM
     Dosage: 1125 MILLIGRAM, QD
     Route: 065
     Dates: start: 20060913
  416. AMOXICILLIN\CLAVULANATE POTASSIUM [Concomitant]
     Active Substance: AMOXICILLIN\CLAVULANATE POTASSIUM
     Dosage: 2625 MILLIGRAM, QD
     Route: 065
     Dates: start: 20060913
  417. AMOXICILLIN [Concomitant]
     Active Substance: AMOXICILLIN
     Indication: Pneumonia
     Dosage: 250 MILLIGRAM, TID
     Route: 048
     Dates: start: 20060913
  418. AMOXICILLIN [Concomitant]
     Active Substance: AMOXICILLIN
     Indication: Ill-defined disorder
     Dosage: 1 GRAM,TID, 0.33 DAY
     Route: 042
     Dates: start: 20060913
  419. AMOXICILLIN [Concomitant]
     Active Substance: AMOXICILLIN
     Dosage: 1 GRAM, TID
     Route: 042
  420. AMOXICILLIN [Concomitant]
     Active Substance: AMOXICILLIN
     Dosage: 6 DOSAGE FORM
     Route: 065
  421. AMOXICILLIN [Concomitant]
     Active Substance: AMOXICILLIN
     Dosage: 250 MILLIGRAM, TID
     Route: 048
     Dates: start: 20060913
  422. AMOXICILLIN [Concomitant]
     Active Substance: AMOXICILLIN
     Dosage: 250 MILLIGRAM
     Route: 048
     Dates: start: 20060913
  423. AMOXICILLIN [Concomitant]
     Active Substance: AMOXICILLIN
     Dosage: 1125 MILLIGRAM, QD
     Route: 065
     Dates: start: 20060913
  424. AMOXICILLIN [Concomitant]
     Active Substance: AMOXICILLIN
     Dosage: 875 MILLIGRAM, QD
     Route: 065
     Dates: start: 20060913
  425. AMOXICILLIN [Concomitant]
     Active Substance: AMOXICILLIN
     Dosage: 2625 MILLIGRAM, QD
     Route: 065
     Dates: start: 20060913
  426. PANTOPRAZOLE [Concomitant]
     Active Substance: PANTOPRAZOLE
     Indication: Ill-defined disorder
     Dosage: 40 MILLIGRAM
     Route: 042
  427. PANTOPRAZOLE [Concomitant]
     Active Substance: PANTOPRAZOLE
     Dosage: 40 MILLIGRAM, QD
     Route: 042
  428. CIPROFLOXACIN HYDROCHLORIDE [Concomitant]
     Active Substance: CIPROFLOXACIN HYDROCHLORIDE
     Indication: Ill-defined disorder
     Dosage: 400 MILLIGRAM, QD
     Route: 042
  429. CIPROFLOXACIN HYDROCHLORIDE [Concomitant]
     Active Substance: CIPROFLOXACIN HYDROCHLORIDE
     Dosage: 400 MILLIGRAM, QD
     Route: 042
  430. CIPROFLOXACIN HYDROCHLORIDE [Concomitant]
     Active Substance: CIPROFLOXACIN HYDROCHLORIDE
     Dosage: 400 MILLIGRAM, QD
     Route: 042
  431. CIPROFLOXACIN HYDROCHLORIDE [Concomitant]
     Active Substance: CIPROFLOXACIN HYDROCHLORIDE
     Dosage: 400 MILLIGRAM, QD
     Route: 042
  432. CIPROFLOXACIN HYDROCHLORIDE [Concomitant]
     Active Substance: CIPROFLOXACIN HYDROCHLORIDE
     Dosage: UNK
     Route: 065
  433. CIPROFLOXACIN HYDROCHLORIDE [Concomitant]
     Active Substance: CIPROFLOXACIN HYDROCHLORIDE
     Dosage: 400 UNK
     Route: 042
  434. CIPROFLOXACIN HYDROCHLORIDE [Concomitant]
     Active Substance: CIPROFLOXACIN HYDROCHLORIDE
     Dosage: UNK
     Route: 065
  435. ERYTHROMYCIN [Concomitant]
     Active Substance: ERYTHROMYCIN
     Indication: Product used for unknown indication
     Dosage: 250 MILLIGRAM, QD
     Route: 065
  436. ERYTHROMYCIN [Concomitant]
     Active Substance: ERYTHROMYCIN
     Indication: Ill-defined disorder
     Dosage: 250 MILLIGRAM, QD
     Route: 065
  437. ERYTHROMYCIN [Concomitant]
     Active Substance: ERYTHROMYCIN
     Dosage: 25 MILLIGRAM, QD
     Route: 065
  438. ERYTHROMYCIN [Concomitant]
     Active Substance: ERYTHROMYCIN
     Dosage: UNK
     Route: 065
  439. ERYTHROMYCIN [Concomitant]
     Active Substance: ERYTHROMYCIN
     Dosage: 250 MILLIGRAM
     Route: 065
  440. ERYTHROMYCIN [Concomitant]
     Active Substance: ERYTHROMYCIN
     Dosage: 250 UNK
     Route: 050
  441. ERYTHROMYCIN [Concomitant]
     Active Substance: ERYTHROMYCIN
     Dosage: 250 MILLIGRAM, QD
     Route: 050
  442. MIDODRINE [Concomitant]
     Active Substance: MIDODRINE
     Indication: Ill-defined disorder
     Dosage: UNK
     Route: 065
  443. MIDODRINE [Concomitant]
     Active Substance: MIDODRINE
     Dosage: UNK
     Route: 048
  444. CLAVULANATE POTASSIUM [Concomitant]
     Active Substance: CLAVULANATE POTASSIUM
     Indication: Product used for unknown indication
     Dosage: 250 MILLIGRAM
     Route: 048
  445. CLAVULANATE POTASSIUM [Concomitant]
     Active Substance: CLAVULANATE POTASSIUM
     Dosage: 1125 MILLIGRAM, QD
     Route: 065
     Dates: start: 20060913
  446. CLAVULANATE POTASSIUM [Concomitant]
     Active Substance: CLAVULANATE POTASSIUM
     Dosage: 1125 MILLIGRAM, QD (375 MG, TID)
     Route: 065
     Dates: start: 20060913
  447. CLAVULANATE POTASSIUM [Concomitant]
     Active Substance: CLAVULANATE POTASSIUM
     Dosage: 2625 MILLIGRAM, QD
     Route: 065
     Dates: start: 20060913
  448. CLAVULANATE POTASSIUM [Concomitant]
     Active Substance: CLAVULANATE POTASSIUM
     Dosage: 875 MILLIGRAM, QD
     Route: 065
     Dates: start: 20060913

REACTIONS (4)
  - Toxic epidermal necrolysis [Unknown]
  - Drug hypersensitivity [Unknown]
  - Off label use [Unknown]
  - Product use in unapproved indication [Unknown]

NARRATIVE: CASE EVENT DATE: 20060101
